FAERS Safety Report 8061338-2 (Version None)
Quarter: 2012Q1

REPORT INFORMATION
  Report Type: 
  Country: None (occurrence: None)
  Receive Date: 20120120
  Receipt Date: 20110920
  Transmission Date: 20120608
  Serious: No
  Sender: FDA-Public Use
  Company Number: US-ALLERGAN-1112514US

PATIENT
  Age: 76 Year
  Sex: Female

DRUGS (3)
  1. RESTASIS [Suspect]
     Indication: DRY EYE
     Dosage: 1 GTT, BID
     Route: 047
     Dates: start: 20110918, end: 20110918
  2. UNSPECIFIED ASTHMA MEDICATION [Concomitant]
  3. UNSPECIFIED ANTI HYPERTENSIVE [Concomitant]

REACTIONS (3)
  - TREMOR [None]
  - HALLUCINATION [None]
  - HYPERHIDROSIS [None]
